FAERS Safety Report 9251044 (Version 3)
Quarter: 2013Q2

REPORT INFORMATION
  Report Type: Spontaneous
  Country: JP (occurrence: JP)
  Receive Date: 20130424
  Receipt Date: 20130527
  Transmission Date: 20140414
  Serious: Yes (Hospitalization)
  Sender: FDA-Public Use
  Company Number: PHHY2013JP039740

PATIENT
  Age: 73 Year
  Sex: Male
  Weight: 67 kg

DRUGS (14)
  1. FAMVIR [Suspect]
     Indication: HERPES ZOSTER
     Dosage: 500 MG, TID
     Route: 048
     Dates: start: 20130416, end: 20130418
  2. BAYASPIRIN [Concomitant]
     Dosage: 100 MG, UNK
     Route: 048
  3. NU-LOTAN [Concomitant]
     Dosage: 50 MG, UNK
     Route: 048
  4. RIBALL [Concomitant]
     Dosage: 200 MG, UNK
     Route: 048
  5. GOODMIN [Concomitant]
     Dosage: 0.25 MG, UNK
     Route: 048
  6. MEROPEN [Concomitant]
     Dosage: 1.5 G, UNK
     Route: 041
     Dates: start: 20130323, end: 20130417
  7. MEROPEN [Concomitant]
     Dosage: 1 G, UNK
     Route: 042
     Dates: start: 20130417
  8. PREDNISOLONE [Concomitant]
     Dosage: 40 MG, UNK
     Route: 048
     Dates: start: 20130323
  9. PREDNISOLONE [Concomitant]
     Dosage: 30 MG, UNK
     Route: 048
     Dates: start: 20130327
  10. PREDNISOLONE [Concomitant]
     Dosage: 25 MG, UNK
     Route: 048
     Dates: start: 20130403
  11. PREDNISOLONE [Concomitant]
     Dosage: 20 MG, UNK
     Route: 048
     Dates: start: 20130417
  12. SELBEX [Concomitant]
     Dosage: 100 MG, UNK
     Route: 048
     Dates: start: 20130417
  13. LAFUTIDINE [Concomitant]
     Dosage: 20 MG, UNK
     Route: 048
     Dates: start: 20130318, end: 20130417
  14. BAKTAR [Concomitant]
     Dosage: 1 DF, UNK
     Route: 048
     Dates: start: 20130323, end: 20130417

REACTIONS (1)
  - Pancytopenia [Recovered/Resolved]
